FAERS Safety Report 14510473 (Version 1)
Quarter: 2018Q1

REPORT INFORMATION
  Report Type: Spontaneous
  Country: US (occurrence: US)
  Receive Date: 20180209
  Receipt Date: 20180209
  Transmission Date: 20180509
  Serious: Yes (Hospitalization, Other)
  Sender: FDA-Public Use
  Company Number: US-JNJFOC-20180208015

PATIENT
  Age: 58 Year
  Sex: Female
  Weight: 115.67 kg

DRUGS (1)
  1. INVOKANA [Suspect]
     Active Substance: CANAGLIFLOZIN
     Indication: PRODUCT USED FOR UNKNOWN INDICATION
     Route: 048

REACTIONS (6)
  - Foot amputation [Unknown]
  - Diabetic ulcer [Unknown]
  - Diabetic foot infection [Unknown]
  - Gangrene [Unknown]
  - Septic shock [Unknown]
  - Toe amputation [Unknown]

NARRATIVE: CASE EVENT DATE: 20140821
